FAERS Safety Report 22782435 (Version 3)
Quarter: 2023Q4

REPORT INFORMATION
  Report Type: Spontaneous
  Country: US (occurrence: US)
  Receive Date: 20230803
  Receipt Date: 20231215
  Transmission Date: 20240110
  Serious: Yes (Other)
  Sender: FDA-Public Use
  Company Number: US-BRISTOL-MYERS SQUIBB COMPANY-2023-108858

PATIENT
  Age: 74 Year
  Sex: Female
  Weight: 55.79 kg

DRUGS (17)
  1. REVLIMID [Suspect]
     Active Substance: LENALIDOMIDE
     Indication: Plasma cell myeloma
     Dosage: 28/28 DAILY.
     Route: 048
     Dates: start: 20221201
  2. REVLIMID [Suspect]
     Active Substance: LENALIDOMIDE
     Dosage: 28/28 DAY
     Route: 048
     Dates: start: 20230515
  3. REVLIMID [Suspect]
     Active Substance: LENALIDOMIDE
     Dosage: FRQ-28
     Route: 048
     Dates: start: 20230629
  4. REVLIMID [Suspect]
     Active Substance: LENALIDOMIDE
     Dosage: FRQ-28
     Route: 048
     Dates: start: 20230731
  5. ALPRAZOLAM [Concomitant]
     Active Substance: ALPRAZOLAM
     Indication: Product used for unknown indication
     Dosage: FREQUENCY: HS
     Route: 048
     Dates: start: 20220303
  6. BENAZEPRIL HYDROCHLORIDE [Concomitant]
     Active Substance: BENAZEPRIL HYDROCHLORIDE
     Indication: Product used for unknown indication
     Route: 048
     Dates: start: 20220303
  7. LEVOCETIRIZINE DIHYDROCHLORIDE [Concomitant]
     Active Substance: LEVOCETIRIZINE DIHYDROCHLORIDE
     Indication: Product used for unknown indication
     Dosage: AS NEEDED
     Route: 048
     Dates: start: 20220303
  8. FLONASE ALLERGY RELIEF [Concomitant]
     Active Substance: FLUTICASONE PROPIONATE
     Indication: Product used for unknown indication
     Dosage: 50 MCG/ACT AS NEEDED.
     Route: 045
     Dates: start: 20220303
  9. CVS MELATONIN [Concomitant]
     Indication: Product used for unknown indication
     Dosage: FREQUENCY: HS.
     Route: 048
     Dates: start: 20220303
  10. ACETAMINOPHEN [Concomitant]
     Active Substance: ACETAMINOPHEN
     Indication: Product used for unknown indication
     Dosage: EXTRA STRENGHT    AS NEEDED
     Route: 048
     Dates: start: 20220303
  11. PROLIA [Concomitant]
     Active Substance: DENOSUMAB
     Indication: Product used for unknown indication
     Dosage: SUBCUTANEOUS SOLUTION PREFILLED.
     Route: 058
     Dates: start: 20220307
  12. SINUS [AMOXICILLIN TRIHYDRATE;BENZYDAMINE HYDROCHLORIDE;BROMHEXINE HYD [Concomitant]
     Indication: Product used for unknown indication
     Dosage: 3-4 TABS PO AS NEEDED.
     Route: 048
     Dates: start: 20220307
  13. SIMVASTATIN [Concomitant]
     Active Substance: SIMVASTATIN
     Indication: Product used for unknown indication
     Route: 048
     Dates: start: 20220307
  14. ASPIRIN [Concomitant]
     Active Substance: ASPIRIN
     Indication: Product used for unknown indication
     Dosage: DELAYED RELEASE.
     Route: 048
     Dates: start: 20220307
  15. METOCLOPRAMIDE HYDROCHLORIDE [Concomitant]
     Active Substance: METOCLOPRAMIDE HYDROCHLORIDE
     Indication: Product used for unknown indication
     Dosage: AS NEEDED TAKES WITH MEALS IF NAUSEATED.
     Route: 048
     Dates: start: 20220401
  16. PREVIDENT [Concomitant]
     Active Substance: SODIUM FLUORIDE
     Indication: Product used for unknown indication
     Dosage: 5000 PLUS DENTAL CREAM 1.
     Route: 048
     Dates: start: 20220608
  17. CITRACAL + D3 [Concomitant]
     Indication: Product used for unknown indication
     Dosage: 250-107-500
     Route: 048
     Dates: start: 20220307

REACTIONS (1)
  - Neuropathy peripheral [Recovered/Resolved]

NARRATIVE: CASE EVENT DATE: 20230601
